FAERS Safety Report 7775716-X (Version None)
Quarter: 2011Q3

REPORT INFORMATION
  Report Type: 
  Country: None (occurrence: None)
  Receive Date: 20110923
  Receipt Date: 20110920
  Transmission Date: 20111222
  Serious: Yes (Other)
  Sender: FDA-Public Use
  Company Number: FR-GLAXOSMITHKLINE-B0745760A

PATIENT
  Age: 18 Year
  Sex: Female
  Weight: 46 kg

DRUGS (3)
  1. ZOLPIDEM [Concomitant]
     Route: 065
  2. PAROXETINE HCL [Suspect]
     Indication: DEPRESSION
     Dosage: 20MG TWICE PER DAY
     Route: 048
     Dates: start: 20110814, end: 20110914
  3. ALPRAZOLAM [Concomitant]
     Route: 065

REACTIONS (3)
  - EXTRAPYRAMIDAL DISORDER [None]
  - DYSKINESIA [None]
  - EXTREMITY CONTRACTURE [None]
